FAERS Safety Report 24707966 (Version 2)
Quarter: 2024Q4

REPORT INFORMATION
  Report Type: Spontaneous
  Country: IT (occurrence: IT)
  Receive Date: 20241206
  Receipt Date: 20241211
  Transmission Date: 20250115
  Serious: Yes (Death, Other)
  Sender: NOVARTIS
  Company Number: IT-002147023-NVSC2024IT232445

PATIENT
  Sex: Male

DRUGS (1)
  1. KYMRIAH [Suspect]
     Active Substance: TISAGENLECLEUCEL
     Indication: Acute lymphocytic leukaemia
     Dosage: UNK (1.3 X 108 CD3+), ONCE/SINGLE
     Route: 042
     Dates: start: 20230810, end: 20230810

REACTIONS (6)
  - Lung disorder [Fatal]
  - Pyrexia [Fatal]
  - Hypotension [Fatal]
  - Hypoxia [Fatal]
  - Cytokine release syndrome [Fatal]
  - Interleukin level increased [Fatal]

NARRATIVE: CASE EVENT DATE: 20230101
